FAERS Safety Report 14217624 (Version 1)
Quarter: 2017Q4

REPORT INFORMATION
  Report Type: Spontaneous
  Country: US (occurrence: US)
  Receive Date: 20171123
  Receipt Date: 20171123
  Transmission Date: 20180321
  Serious: No
  Sender: FDA-Public Use
  Company Number: US-PFIZER INC-2017499896

PATIENT
  Age: 83 Year

DRUGS (1)
  1. TORISEL [Suspect]
     Active Substance: TEMSIROLIMUS
     Indication: RENAL CANCER
     Dosage: 25 MG, CYCLIC (3/3 WEEKLY)
     Dates: start: 20150731, end: 20151016

REACTIONS (1)
  - Drug intolerance [Unknown]
